FAERS Safety Report 21136790 (Version 1)
Quarter: 2022Q3

REPORT INFORMATION
  Report Type: Spontaneous
  Country: GB (occurrence: GB)
  Receive Date: 20220727
  Receipt Date: 20220727
  Transmission Date: 20221026
  Serious: No
  Sender: FDA-Public Use
  Company Number: None

PATIENT
  Age: 58 Year
  Sex: Female
  Weight: 70 kg

DRUGS (3)
  1. PAXLOVID [Suspect]
     Active Substance: NIRMATRELVIR\RITONAVIR
     Indication: COVID-19 treatment
     Dosage: 350 MG, UNK
     Dates: start: 20220714, end: 20220719
  2. FINGOLIMOD [Concomitant]
     Active Substance: FINGOLIMOD
     Indication: Multiple sclerosis
     Dosage: UNK
  3. TROSPIUM [Concomitant]
     Active Substance: TROSPIUM
     Indication: Bladder spasm
     Dosage: UNK

REACTIONS (3)
  - Dysgeusia [Recovered/Resolved]
  - Taste disorder [Recovering/Resolving]
  - Product prescribing error [Unknown]

NARRATIVE: CASE EVENT DATE: 20220701
